FAERS Safety Report 25177433 (Version 2)
Quarter: 2025Q2

REPORT INFORMATION
  Report Type: Spontaneous
  Country: CN (occurrence: CN)
  Receive Date: 20250409
  Receipt Date: 20250417
  Transmission Date: 20250716
  Serious: Yes (Hospitalization, Other)
  Sender: SANOFI AVENTIS
  Company Number: CN-DialogSolutions-SAAVPROD-PI754150-C1

PATIENT
  Age: 74 Year
  Sex: Male

DRUGS (7)
  1. PLAVIX [Suspect]
     Active Substance: CLOPIDOGREL BISULFATE
     Indication: Cerebral infarction
  2. PLAVIX [Suspect]
     Active Substance: CLOPIDOGREL BISULFATE
     Indication: Lacunar infarction
  3. ASPIRIN [Suspect]
     Active Substance: ASPIRIN
     Indication: Cerebral infarction
  4. ASPIRIN [Suspect]
     Active Substance: ASPIRIN
     Indication: Lacunar infarction
  5. CEFOPERAZONE SODIUM\SULBACTAM [Concomitant]
     Active Substance: CEFOPERAZONE SODIUM\SULBACTAM
     Indication: Bronchitis chronic
  6. BICALUTAMIDE [Concomitant]
     Active Substance: BICALUTAMIDE
     Indication: Prostate cancer
  7. GOSERELIN [Concomitant]
     Active Substance: GOSERELIN
     Indication: Prostate cancer

REACTIONS (4)
  - Coma [Unknown]
  - Mydriasis [Unknown]
  - Respiratory failure [Unknown]
  - Basal ganglia haemorrhage [Unknown]
